FAERS Safety Report 6347574-1 (Version None)
Quarter: 2009Q3

REPORT INFORMATION
  Report Type: 
  Country: None (occurrence: None)
  Receive Date: 20090909
  Receipt Date: 20090909
  Transmission Date: 20100115
  Serious: Yes (Hospitalization)
  Sender: FDA-Public Use
  Company Number: None

PATIENT
  Sex: Female
  Weight: 76.3 kg

DRUGS (4)
  1. TRISENOX [Suspect]
  2. CYTARABINE [Suspect]
  3. DAUNORUBICIN HCL [Suspect]
  4. TRETINOIN [Suspect]

REACTIONS (12)
  - DYSPNOEA [None]
  - EAR PAIN [None]
  - ELECTROCARDIOGRAM ST-T CHANGE [None]
  - HEPATIC FUNCTION ABNORMAL [None]
  - HYPOTENSION [None]
  - HYPOXIA [None]
  - MUSCULOSKELETAL PAIN [None]
  - OROPHARYNGEAL PAIN [None]
  - RENAL FAILURE ACUTE [None]
  - RESPIRATORY DISTRESS [None]
  - SINUS TACHYCARDIA [None]
  - TACHYCARDIA [None]
